FAERS Safety Report 6193899-2 (Version None)
Quarter: 2009Q2

REPORT INFORMATION
  Report Type: 
  Country: None (occurrence: None)
  Receive Date: 20090518
  Receipt Date: 20090107
  Transmission Date: 20091009
  Serious: Yes (Other)
  Sender: FDA-Public Use
  Company Number: US-PFIZER INC-2008098979

PATIENT
  Sex: Female

DRUGS (14)
  1. CHANTIX [Suspect]
     Indication: SMOKING CESSATION THERAPY
     Dosage: UNK
     Route: 048
     Dates: start: 20081003, end: 20090201
  2. ELAVIL [Concomitant]
     Indication: DEPRESSION
  3. LARIAM [Concomitant]
  4. RESTORIL [Concomitant]
     Indication: ANXIETY
  5. TYLENOL [Concomitant]
  6. ACETYLSALICYLIC ACID [Concomitant]
  7. ALEVE [Concomitant]
  8. LIBRIUM [Concomitant]
     Indication: ANXIETY
  9. LEXAPRO [Concomitant]
     Dosage: UNK
  10. ANXIOLYTICS [Concomitant]
     Dosage: UNK
  11. TYLENOL W/ CODEINE NO. 4 [Concomitant]
     Indication: BACK PAIN
  12. ADVAIR HFA [Concomitant]
  13. ALL OTHER THERAPEUTIC PRODUCTS [Concomitant]
  14. COFFEE [Concomitant]

REACTIONS (82)
  - ABASIA [None]
  - ABDOMINAL DISCOMFORT [None]
  - ABDOMINAL DISTENSION [None]
  - ABNORMAL BEHAVIOUR [None]
  - ABNORMAL DREAMS [None]
  - ABNORMAL SLEEP-RELATED EVENT [None]
  - AGITATION [None]
  - ALCOHOL USE [None]
  - ANGER [None]
  - ANOREXIA [None]
  - ANXIETY [None]
  - ARTHRALGIA [None]
  - ARTHRITIS [None]
  - ARTHROPATHY [None]
  - ASTHENIA [None]
  - BACK PAIN [None]
  - BRUXISM [None]
  - CHEST PAIN [None]
  - CONDITION AGGRAVATED [None]
  - CRYING [None]
  - DENTAL CARIES [None]
  - DEPRESSION [None]
  - DISCOMFORT [None]
  - DISEASE RECURRENCE [None]
  - DISTURBANCE IN ATTENTION [None]
  - DRUG DOSE OMISSION [None]
  - DRUG WITHDRAWAL SYNDROME [None]
  - DYSPNOEA EXERTIONAL [None]
  - ENERGY INCREASED [None]
  - EXTRUSION OF DEVICE [None]
  - FALL [None]
  - FATIGUE [None]
  - FEAR [None]
  - FEELING ABNORMAL [None]
  - FEELING JITTERY [None]
  - FRUSTRATION [None]
  - GAIT DISTURBANCE [None]
  - GASTROENTERITIS VIRAL [None]
  - HAIR TEXTURE ABNORMAL [None]
  - HEADACHE [None]
  - HOMICIDAL IDEATION [None]
  - HYPERHIDROSIS [None]
  - HYPERPHAGIA [None]
  - HYPERSENSITIVITY [None]
  - IMPATIENCE [None]
  - INSOMNIA [None]
  - IRRITABILITY [None]
  - LAZINESS [None]
  - LUNG DISORDER [None]
  - MALAISE [None]
  - MEMORY IMPAIRMENT [None]
  - MENOPAUSE [None]
  - MENTAL DISORDER [None]
  - MENTAL IMPAIRMENT [None]
  - MOOD ALTERED [None]
  - MUSCLE SPASMS [None]
  - MUSCULOSKELETAL STIFFNESS [None]
  - NAIL DISORDER [None]
  - NAUSEA [None]
  - NERVOUSNESS [None]
  - NICOTINE DEPENDENCE [None]
  - PAIN [None]
  - PAIN IN EXTREMITY [None]
  - PARENT-CHILD PROBLEM [None]
  - PAROSMIA [None]
  - PARTNER STRESS [None]
  - PRODUCTIVE COUGH [None]
  - RESTLESSNESS [None]
  - SELF INJURIOUS BEHAVIOUR [None]
  - SELF-INJURIOUS IDEATION [None]
  - SNEEZING [None]
  - SOMNOLENCE [None]
  - SPUTUM DISCOLOURED [None]
  - STRESS [None]
  - TENDONITIS [None]
  - THINKING ABNORMAL [None]
  - TOBACCO USER [None]
  - TOOTH LOSS [None]
  - TREATMENT NONCOMPLIANCE [None]
  - TREMOR [None]
  - VOMITING [None]
  - WEIGHT INCREASED [None]
